FAERS Safety Report 9531605 (Version 1)
Quarter: 2013Q3

REPORT INFORMATION
  Report Type: Spontaneous
  Country: IT (occurrence: None)
  Receive Date: 20130916
  Receipt Date: 20130916
  Transmission Date: 20140515
  Serious: Yes (Other)
  Sender: FDA-Public Use
  Company Number: SYM-2013-10623

PATIENT
  Sex: 0

DRUGS (3)
  1. 5-FU [Suspect]
     Indication: RECTAL ADENOCARCINOMA
  2. OXALIPLATIN [Suspect]
     Indication: RECTAL ADENOCARCINOMA
  3. THERAPEUTIC RADIOPHARMACEUTICALS [Suspect]
     Indication: RECTAL ADENOCARCINOMA

REACTIONS (1)
  - Neutropenia [None]
